FAERS Safety Report 25991267 (Version 1)
Quarter: 2025Q4

REPORT INFORMATION
  Report Type: Spontaneous
  Country: US (occurrence: US)
  Receive Date: 20251103
  Receipt Date: 20251103
  Transmission Date: 20260117
  Serious: No
  Sender: SANOFI AVENTIS
  Company Number: US-SANOFI-02699222

PATIENT
  Sex: Female

DRUGS (2)
  1. WAYRILZ [Suspect]
     Active Substance: RILZABRUTINIB
     Indication: Immune thrombocytopenia
     Dosage: 400 MG, BID
     Dates: start: 202510
  2. WAYRILZ [Suspect]
     Active Substance: RILZABRUTINIB
     Dosage: 400 MG, QD
     Dates: start: 202510

REACTIONS (3)
  - Nausea [Unknown]
  - Diarrhoea [Unknown]
  - Intentional product misuse [Unknown]

NARRATIVE: CASE EVENT DATE: 20251001
